FAERS Safety Report 6382755-2 (Version None)
Quarter: 2009Q3

REPORT INFORMATION
  Report Type: 
  Country: None (occurrence: None)
  Receive Date: 20090930
  Receipt Date: 20090918
  Transmission Date: 20100115
  Serious: Yes (Hospitalization)
  Sender: FDA-Public Use
  Company Number: SE-WYE-G04473309

PATIENT
  Sex: Male

DRUGS (1)
  1. TAZOCIN [Suspect]
     Indication: GASTROINTESTINAL INFLAMMATION
     Dosage: UNKNOWN
     Dates: start: 20090915, end: 20090915

REACTIONS (7)
  - ERYTHEMA [None]
  - FACIAL PALSY [None]
  - FEELING HOT [None]
  - HEADACHE [None]
  - HEART RATE DECREASED [None]
  - HYPERSENSITIVITY [None]
  - SWELLING FACE [None]
